FAERS Safety Report 6104798-6 (Version None)
Quarter: 2009Q1

REPORT INFORMATION
  Report Type: 
  Country: None (occurrence: None)
  Receive Date: 20090306
  Receipt Date: 20090302
  Transmission Date: 20090719
  Serious: Yes (Death, Other)
  Sender: FDA-Public Use
  Company Number: PHHY2009MX06964

PATIENT
  Sex: Female

DRUGS (3)
  1. DIOVAN [Suspect]
     Indication: HYPERTENSION
     Dosage: 80 MG, QD
     Route: 048
     Dates: start: 20060101
  2. DIGOXIN [Concomitant]
     Indication: ISCHAEMIC CARDIOMYOPATHY
  3. CONCOR [Concomitant]

REACTIONS (10)
  - CEREBRAL INFARCTION [None]
  - DIABETIC COMPLICATION [None]
  - DISORIENTATION [None]
  - GAIT DISTURBANCE [None]
  - HYPERTENSION [None]
  - ISCHAEMIC CARDIOMYOPATHY [None]
  - MULTI-ORGAN FAILURE [None]
  - MYOCARDIAL ISCHAEMIA [None]
  - POSTPARTUM HYPOPITUITARISM [None]
  - THROMBOSIS [None]
